FAERS Safety Report 24293066 (Version 1)
Quarter: 2024Q3

REPORT INFORMATION
  Report Type: Spontaneous
  Country: US (occurrence: None)
  Receive Date: 20240906
  Receipt Date: 20240906
  Transmission Date: 20241017
  Serious: No
  Sender: DOMPE FARMACEUTICI
  Company Number: US-FARMAPROD-202308-202311-3443

PATIENT
  Sex: Female

DRUGS (13)
  1. OXERVATE [Suspect]
     Active Substance: CENEGERMIN-BKBJ
     Indication: Neurotrophic keratopathy
     Route: 047
     Dates: start: 20231111
  2. OXERVATE [Suspect]
     Active Substance: CENEGERMIN-BKBJ
     Indication: Hypoaesthesia eye
  3. CEQUA [Concomitant]
     Active Substance: CYCLOSPORINE
  4. SYSTANE (HYPROMELLOSE 2910 (4000 MPA.S)) [Concomitant]
     Active Substance: HYPROMELLOSE 2910 (4000 MPA.S)
     Dosage: 0.3 %-0.4%
  5. PROBIOTICS NOS [Concomitant]
     Active Substance: PROBIOTICS NOS
     Dosage: 5 BILLION CELL
  6. VITAMIN C [Concomitant]
     Active Substance: ASCORBIC ACID
  7. CRANBERRY URINARY TRACT HEALTH [Concomitant]
  8. CALCIUM [Concomitant]
     Active Substance: CALCIUM
     Dosage: 500 (1250)
  9. MAGNESIUM [Concomitant]
     Active Substance: MAGNESIUM
  10. SPIRONOLACTONE [Concomitant]
     Active Substance: SPIRONOLACTONE
  11. CARVEDILOL [Concomitant]
     Active Substance: CARVEDILOL
  12. ENTRESTO [Concomitant]
     Active Substance: SACUBITRIL\VALSARTAN
     Dosage: 49 MG-51MG
  13. ELIQUIS [Concomitant]
     Active Substance: APIXABAN

REACTIONS (3)
  - Photophobia [Unknown]
  - Ocular discomfort [Unknown]
  - Product storage error [Unknown]
